FAERS Safety Report 14502995 (Version 1)
Quarter: 2018Q1

REPORT INFORMATION
  Report Type: Spontaneous
  Country: US (occurrence: US)
  Receive Date: 20180208
  Receipt Date: 20180208
  Transmission Date: 20180509
  Serious: No
  Sender: FDA-Public Use
  Company Number: US-US WORLDMEDS, LLC-USW201612-000883

PATIENT
  Sex: Female
  Weight: 62.6 kg

DRUGS (1)
  1. CORGARD [Suspect]
     Active Substance: NADOLOL
     Dates: start: 20161119

REACTIONS (1)
  - Heart rate increased [Recovered/Resolved]
